FAERS Safety Report 10266926 (Version 2)
Quarter: 2014Q3

REPORT INFORMATION
  Report Type: Report from Study
  Country: US (occurrence: US)
  Receive Date: 20140630
  Receipt Date: 20140715
  Transmission Date: 20150326
  Serious: Yes (Hospitalization)
  Sender: FDA-Public Use
  Company Number: US-BIOGENIDEC-2014BI062119

PATIENT
  Age: 58 Year
  Sex: Male

DRUGS (1)
  1. TYSABRI [Suspect]
     Active Substance: NATALIZUMAB
     Indication: CROHN^S DISEASE
     Route: 042
     Dates: start: 20140421

REACTIONS (3)
  - White blood cell count increased [Unknown]
  - International normalised ratio increased [Unknown]
  - Rectal fissure [Recovered/Resolved]

NARRATIVE: CASE EVENT DATE: 201405
